FAERS Safety Report 13524550 (Version 3)
Quarter: 2017Q4

REPORT INFORMATION
  Report Type: Report from Study
  Country: AU (occurrence: AU)
  Receive Date: 20170508
  Receipt Date: 20171005
  Transmission Date: 20180320
  Serious: Yes (Hospitalization, Other)
  Sender: FDA-Public Use
  Company Number: AU-BRISTOL-MYERS SQUIBB COMPANY-BMS-2017-038412

PATIENT
  Sex: Female

DRUGS (1)
  1. DASATINIB. [Suspect]
     Active Substance: DASATINIB
     Indication: CHRONIC MYELOID LEUKAEMIA
     Dosage: 50 MG, QD
     Route: 048
     Dates: start: 20140801

REACTIONS (9)
  - Peripheral swelling [Unknown]
  - Headache [Unknown]
  - Infection [Unknown]
  - Neoplasm malignant [Unknown]
  - Prescribed underdose [Unknown]
  - Immune system disorder [Unknown]
  - Burn infection [Recovering/Resolving]
  - White blood cell count increased [Unknown]
  - Skin disorder [Unknown]
